FAERS Safety Report 17319256 (Version 1)
Quarter: 2020Q1

REPORT INFORMATION
  Report Type: Spontaneous
  Country: CO (occurrence: CO)
  Receive Date: 20200124
  Receipt Date: 20200124
  Transmission Date: 20200409
  Serious: Yes (Other)
  Sender: FDA-Public Use
  Company Number: CO-US-PROVELL PHARMACEUTICALS LLC-9140591

PATIENT
  Sex: Female

DRUGS (3)
  1. EUTIROX [Suspect]
     Active Substance: LEVOTHYROXINE SODIUM
     Indication: HYPOTHYROIDISM
     Dosage: OLD FORMULATION
  2. EUTIROX [Suspect]
     Active Substance: LEVOTHYROXINE SODIUM
     Dosage: OLD FORMULATION
     Dates: start: 202001
  3. EUTIROX [Suspect]
     Active Substance: LEVOTHYROXINE SODIUM
     Dosage: FORMULATION WITH NEW EXCIPIENTS (MANNITOL AND CITRIC ACID)
     Dates: start: 201912

REACTIONS (9)
  - Mental impairment [Not Recovered/Not Resolved]
  - Feeling hot [Not Recovered/Not Resolved]
  - Condition aggravated [Not Recovered/Not Resolved]
  - Somnolence [Not Recovered/Not Resolved]
  - Depression [Not Recovered/Not Resolved]
  - Lethargy [Not Recovered/Not Resolved]
  - Pain [Not Recovered/Not Resolved]
  - Fatigue [Not Recovered/Not Resolved]
  - Anxiety [Not Recovered/Not Resolved]

NARRATIVE: CASE EVENT DATE: 201912
